FAERS Safety Report 6262417-2 (Version None)
Quarter: 2009Q3

REPORT INFORMATION
  Report Type: 
  Country: None (occurrence: None)
  Receive Date: 20090709
  Receipt Date: 20090625
  Transmission Date: 20100115
  Serious: Yes (Disabling, Other)
  Sender: FDA-Public Use
  Company Number: US-ROCHE-634604

PATIENT
  Sex: Female
  Weight: 64.4 kg

DRUGS (2)
  1. PEG-INTERFERON A-2A (RO 25-8310) [Suspect]
     Indication: HEPATITIS C
     Dosage: FORM: PRE-FILLED SYRINGE, DOSE: 180 UG/ML
     Route: 058
     Dates: start: 20090224, end: 20090423
  2. RIBASPHERE [Suspect]
     Indication: HEPATITIS C
     Dosage: FREQUENCY REPORTED AS 2 IN THE MORNING AND 3 IN EVENING
     Route: 048
     Dates: start: 20090224, end: 20090423

REACTIONS (9)
  - ASTHENIA [None]
  - DEPRESSION [None]
  - FATIGUE [None]
  - GLOSSITIS [None]
  - HYPERSENSITIVITY [None]
  - RASH [None]
  - SKIN ULCER [None]
  - THYROID DISORDER [None]
  - URTICARIA [None]
